FAERS Safety Report 20197580 (Version 2)
Quarter: 2022Q1

REPORT INFORMATION
  Report Type: Spontaneous
  Country: PL (occurrence: PL)
  Receive Date: 20211217
  Receipt Date: 20220126
  Transmission Date: 20220423
  Serious: Yes (Hospitalization, Other)
  Sender: FDA-Public Use
  Company Number: PL-TEVA-2021-PL-1982752

PATIENT
  Age: 3 Year
  Sex: Male

DRUGS (4)
  1. ACETAMINOPHEN [Suspect]
     Active Substance: ACETAMINOPHEN
     Indication: Pyrexia
     Dosage: UNK
     Route: 065
  2. Dicortineff [Concomitant]
     Indication: Product used for unknown indication
     Dosage: UNK
     Route: 045
  3. POTASSIUM PERMANGANATE [Concomitant]
     Active Substance: POTASSIUM PERMANGANATE
     Indication: Product used for unknown indication
     Dosage: UNK
     Route: 065
  4. TANNO HERMAL [Concomitant]
     Indication: Skin lesion
     Dosage: UNK
     Route: 065

REACTIONS (4)
  - Decreased activity [Unknown]
  - Decreased appetite [Unknown]
  - Drug ineffective [Unknown]
  - Pyrexia [Unknown]
